FAERS Safety Report 7420666-1 (Version None)
Quarter: 2011Q2

REPORT INFORMATION
  Report Type: 
  Country: None (occurrence: None)
  Receive Date: 20110405
  Receipt Date: 20110326
  Transmission Date: 20111010
  Serious: Yes (Disabling)
  Sender: FDA-Public Use
  Company Number: OSCN-NO-0604S-0092

PATIENT
  Age: 33 Year
  Sex: Female
  Weight: 66 kg

DRUGS (5)
  1. OMNISCAN [Suspect]
     Indication: PRODUCT USED FOR UNKNOWN INDICATION
     Dosage: SEE IMAGE
     Dates: start: 20041201, end: 20041201
  2. OMNISCAN [Suspect]
     Indication: PRODUCT USED FOR UNKNOWN INDICATION
     Dosage: SEE IMAGE
     Dates: start: 20050603, end: 20050603
  3. OMNISCAN [Suspect]
     Indication: PRODUCT USED FOR UNKNOWN INDICATION
     Dosage: SEE IMAGE
     Dates: start: 20030101, end: 20050101
  4. OMNISCAN [Suspect]
     Indication: PRODUCT USED FOR UNKNOWN INDICATION
     Dosage: SEE IMAGE
     Dates: start: 20040615, end: 20040615
  5. ERYTHROPOIETIN-ANALOGUE (NEORECORMON) (EPOETI BETA) [Concomitant]

REACTIONS (18)
  - INFECTION [None]
  - FATIGUE [None]
  - ARTERIOSCLEROSIS CORONARY ARTERY [None]
  - WEIGHT DECREASED [None]
  - MUSCULOSKELETAL PAIN [None]
  - FISTULA [None]
  - ASTHENIA [None]
  - ABDOMINAL ADHESIONS [None]
  - MENINGEAL DISORDER [None]
  - CARDIOMEGALY [None]
  - NEPHROGENIC SYSTEMIC FIBROSIS [None]
  - CONDUCTION DISORDER [None]
  - ABDOMINAL ABSCESS [None]
  - SYNCOPE [None]
  - CAROTID ARTERY STENOSIS [None]
  - PLEURAL EFFUSION [None]
  - HYPERPARATHYROIDISM SECONDARY [None]
  - MUSCULOSKELETAL CHEST PAIN [None]
